FAERS Safety Report 20782102 (Version 2)
Quarter: 2023Q1

REPORT INFORMATION
  Report Type: Spontaneous
  Country: US (occurrence: US)
  Receive Date: 20220504
  Receipt Date: 20230320
  Transmission Date: 20230418
  Serious: No
  Sender: FDA-Public Use
  Company Number: US-BEH-2022144717

PATIENT
  Sex: Female

DRUGS (1)
  1. HIZENTRA [Suspect]
     Active Substance: HUMAN IMMUNOGLOBULIN G
     Indication: Immunodeficiency common variable
     Dosage: 10 MILLIGRAM, QW
     Route: 058
     Dates: start: 202201

REACTIONS (3)
  - Infusion site induration [Unknown]
  - Infusion site swelling [Unknown]
  - Infusion site induration [Unknown]
